FAERS Safety Report 10593107 (Version 1)
Quarter: 2014Q4

REPORT INFORMATION
  Report Type: Spontaneous
  Country: US (occurrence: None)
  Receive Date: 20141118
  Receipt Date: 20141118
  Transmission Date: 20150529
  Serious: Yes (Other)
  Sender: FDA-Public Use
  Company Number: None

PATIENT
  Age: 59 Year
  Sex: Female
  Weight: 69.85 kg

DRUGS (1)
  1. BYDUREON [Suspect]
     Active Substance: EXENATIDE
     Indication: BLOOD GLUCOSE INCREASED
     Dosage: 1 SHOT, INTO THE MUSCLE
     Dates: start: 20141105, end: 20141112

REACTIONS (15)
  - Palpitations [None]
  - Middle insomnia [None]
  - Vomiting [None]
  - Blood glucose decreased [None]
  - Dyspnoea [None]
  - Dizziness [None]
  - Constipation [None]
  - Headache [None]
  - Insomnia [None]
  - Chest pain [None]
  - Toothache [None]
  - Cough [None]
  - Nausea [None]
  - Tremor [None]
  - Back pain [None]

NARRATIVE: CASE EVENT DATE: 20141105
